FAERS Safety Report 9558810 (Version 1)
Quarter: 2013Q3

REPORT INFORMATION
  Report Type: Spontaneous
  Country: GB (occurrence: GB)
  Receive Date: 20130926
  Receipt Date: 20130926
  Transmission Date: 20140515
  Serious: Yes (Other)
  Sender: FDA-Public Use
  Company Number: GB-ALLERGAN-1315052US

PATIENT
  Sex: 0

DRUGS (1)
  1. OZURDEX [Suspect]
     Indication: CHORIORETINITIS

REACTIONS (2)
  - Off label use [Unknown]
  - Retinal detachment [Unknown]
